FAERS Safety Report 19187640 (Version 5)
Quarter: 2021Q4

REPORT INFORMATION
  Report Type: Spontaneous
  Country: GB (occurrence: GB)
  Receive Date: 20210428
  Receipt Date: 20211012
  Transmission Date: 20220303
  Serious: Yes (Hospitalization)
  Sender: FDA-Public Use
  Company Number: GB-002147023-NVSC2021GB088629

PATIENT
  Age: 35 Year
  Sex: Female

DRUGS (1)
  1. XOLAIR [Suspect]
     Active Substance: OMALIZUMAB
     Indication: Product used for unknown indication
     Route: 058

REACTIONS (12)
  - Lower respiratory tract infection [Not Recovered/Not Resolved]
  - Diabetic ketoacidosis [Unknown]
  - Heart rate increased [Not Recovered/Not Resolved]
  - Asthma [Not Recovered/Not Resolved]
  - Paranoia [Unknown]
  - Wound [Unknown]
  - Chest pain [Not Recovered/Not Resolved]
  - Nightmare [Unknown]
  - Insomnia [Unknown]
  - Sepsis [Unknown]
  - Wheezing [Not Recovered/Not Resolved]
  - Inappropriate schedule of product administration [Unknown]
